FAERS Safety Report 13765948 (Version 7)
Quarter: 2018Q3

REPORT INFORMATION
  Report Type: Spontaneous
  Country: US (occurrence: US)
  Receive Date: 20170718
  Receipt Date: 20180702
  Transmission Date: 20181010
  Serious: Yes (Other)
  Sender: FDA-Public Use
  Company Number: US-ASTRAZENECA-2017SE73348

PATIENT
  Age: 90 Year
  Sex: Female
  Weight: 61.7 kg

DRUGS (11)
  1. NEXIUM 24HR [Suspect]
     Active Substance: ESOMEPRAZOLE MAGNESIUM
     Indication: DYSPEPSIA
     Route: 048
     Dates: start: 2016
  2. BABY ASPIRIN [Concomitant]
     Active Substance: ASPIRIN
     Indication: ARTERIAL DISORDER
  3. VITAMIN D [Concomitant]
     Active Substance: CHOLECALCIFEROL
  4. NEXIUM 24HR [Suspect]
     Active Substance: ESOMEPRAZOLE MAGNESIUM
     Indication: ABDOMINAL PAIN LOWER
     Route: 048
     Dates: start: 2016
  5. TORSEMIDE. [Concomitant]
     Active Substance: TORSEMIDE
  6. IRON [Concomitant]
     Active Substance: IRON
     Indication: ANAEMIA
  7. ALPRAZOLAM. [Concomitant]
     Active Substance: ALPRAZOLAM
     Indication: SLEEP DISORDER
  8. XANAX [Concomitant]
     Active Substance: ALPRAZOLAM
  9. NEXIUM 24HR [Suspect]
     Active Substance: ESOMEPRAZOLE MAGNESIUM
     Indication: GASTROOESOPHAGEAL REFLUX DISEASE
     Route: 048
     Dates: start: 2016
  10. ASPIRIN. [Concomitant]
     Active Substance: ASPIRIN
     Dosage: 81
  11. ATENOLOL. [Concomitant]
     Active Substance: ATENOLOL
     Indication: ATRIAL FIBRILLATION

REACTIONS (5)
  - Diarrhoea [Recovered/Resolved]
  - Alopecia [Recovered/Resolved]
  - Faeces discoloured [Recovered/Resolved]
  - Weight decreased [Unknown]
  - Proteinuria [Recovered/Resolved]

NARRATIVE: CASE EVENT DATE: 201705
